FAERS Safety Report 17191982 (Version 1)
Quarter: 2019Q4

REPORT INFORMATION
  Report Type: Report from Study
  Country: DE (occurrence: DE)
  Receive Date: 20191223
  Receipt Date: 20191223
  Transmission Date: 20200122
  Serious: Yes (Congenital Anomaly)
  Sender: FDA-Public Use
  Company Number: DE-TEVA-2019-DE-1156760

PATIENT
  Sex: Female

DRUGS (6)
  1. PARACETAMOL [Suspect]
     Active Substance: ACETAMINOPHEN
     Indication: PAIN
     Dosage: 500-1000 MG/DAY, RECEIVED AT GESTATIONAL WEEKS 24+1 AND 24+2
     Route: 064
  2. ESTRADIOL. [Suspect]
     Active Substance: ESTRADIOL
     Dosage: DURING THE SECOND TRIMESTER
     Route: 064
  3. INSULIN [Suspect]
     Active Substance: INSULIN NOS
     Dosage: DURING THE SECOND AND THIRD TRIMESTERS
     Route: 064
  4. MOXIFLOXACIN. [Suspect]
     Active Substance: MOXIFLOXACIN
     Dosage: DURING THE SECOND TRIMESTER
     Route: 064
  5. PROGESTERONE. [Suspect]
     Active Substance: PROGESTERONE
     Dosage: DURING THE SECOND TRIMESTER
     Route: 064
  6. LEVOTHYROXINE. [Suspect]
     Active Substance: LEVOTHYROXINE
     Dosage: DURING ALL TRIMESTERS
     Route: 064

REACTIONS (2)
  - Patent ductus arteriosus [Recovered/Resolved]
  - Foetal exposure during pregnancy [Unknown]
